FAERS Safety Report 17656962 (Version 2)
Quarter: 2020Q2

REPORT INFORMATION
  Report Type: Spontaneous
  Country: JP (occurrence: JP)
  Receive Date: 20200410
  Receipt Date: 20200529
  Transmission Date: 20200713
  Serious: Yes (Death, Hospitalization, Other)
  Sender: FDA-Public Use
  Company Number: JP-JNJFOC-20200407406

PATIENT
  Age: 76 Year
  Sex: Female
  Weight: 59.9 kg

DRUGS (9)
  1. DIART [Concomitant]
     Active Substance: AZOSEMIDE
  2. EDIROL [Concomitant]
     Active Substance: ELDECALCITOL
  3. MAINTATE [Concomitant]
     Active Substance: BISOPROLOL FUMARATE
  4. TENELIA [Concomitant]
     Active Substance: TENELIGLIPTIN
  5. RIVAROXABAN [Suspect]
     Active Substance: RIVAROXABAN
     Indication: MYOCARDIAL INFARCTION
     Dosage: 15 MG, QD
     Route: 048
     Dates: start: 20190103, end: 20190901
  6. PERINDOPRIL [Concomitant]
     Active Substance: PERINDOPRIL
  7. BONALON [Concomitant]
     Active Substance: ALENDRONATE SODIUM
  8. TAKECAB [Concomitant]
     Active Substance: VONOPRAZAN FUMARATE
  9. PREDNISOLONE. [Concomitant]
     Active Substance: PREDNISOLONE
     Dosage: DAILY DOSE 20 MG
     Route: 048
     Dates: start: 20190829

REACTIONS (7)
  - Respiratory disorder [Unknown]
  - Cerebral infarction [Unknown]
  - Septic shock [Fatal]
  - Pulmonary alveolar haemorrhage [Unknown]
  - Fungal sepsis [Fatal]
  - Interstitial lung disease [Recovering/Resolving]
  - Pyrexia [Unknown]

NARRATIVE: CASE EVENT DATE: 20190826
